FAERS Safety Report 9493797 (Version 1)
Quarter: 2013Q3

REPORT INFORMATION
  Report Type: Spontaneous
  Country: US (occurrence: US)
  Receive Date: 20130902
  Receipt Date: 20130902
  Transmission Date: 20140515
  Serious: No
  Sender: FDA-Public Use
  Company Number: US-009507513-1308USA013596

PATIENT
  Age: 21 Year
  Sex: Female
  Weight: 58.96 kg

DRUGS (3)
  1. IMPLANON [Suspect]
     Indication: CONTRACEPTION
     Route: 059
  2. IMPLANON [Suspect]
     Indication: MENSTRUAL DISORDER
  3. HYDROCODONE [Concomitant]
     Dosage: 15 TABLETS

REACTIONS (2)
  - Ovarian cyst [Unknown]
  - Menorrhagia [Unknown]
